FAERS Safety Report 25711797 (Version 1)
Quarter: 2025Q3

REPORT INFORMATION
  Report Type: Report from Study
  Country: US (occurrence: US)
  Receive Date: 20250821
  Receipt Date: 20250821
  Transmission Date: 20251020
  Serious: Yes (Hospitalization)
  Sender: JAZZ
  Company Number: US-JAZZ PHARMACEUTICALS-2024-US-010079

PATIENT
  Sex: Male

DRUGS (8)
  1. EPIDIOLEX [Suspect]
     Active Substance: CANNABIDIOL
     Indication: Lennox-Gastaut syndrome
     Dosage: 800 MILLIGRAM, BID
     Dates: start: 20240506
  2. EPIDIOLEX [Suspect]
     Active Substance: CANNABIDIOL
     Indication: Epilepsy
     Dosage: 3 MILLILITER, BID
  3. EPIDIOLEX [Suspect]
     Active Substance: CANNABIDIOL
     Dosage: 5 MILLILITER, BID, G TUBE
  4. EPIDIOLEX [Suspect]
     Active Substance: CANNABIDIOL
     Dosage: 300 MILLIGRAM, BID (7.3 MILLIGRAM/KILOGRAM/DAY) PGT
  5. CLOBAZAM [Concomitant]
     Active Substance: CLOBAZAM
     Indication: Tonic convulsion
     Dosage: 20 MILLIGRAM, BID
  6. VALPROATE [Concomitant]
     Active Substance: VALPROIC ACID
     Indication: Product used for unknown indication
     Dosage: 500 MILLIGRAM, BID
  7. LEVETIRACETAM [Concomitant]
     Active Substance: LEVETIRACETAM
     Indication: Product used for unknown indication
     Dosage: 2500 MILLIGRAM, BID
  8. CARBAMAZEPINE [Concomitant]
     Active Substance: CARBAMAZEPINE
     Indication: Product used for unknown indication
     Dosage: 750 MILLIGRAM, BID

REACTIONS (6)
  - Pneumonia aspiration [Recovered/Resolved]
  - COVID-19 [Unknown]
  - Staphylococcal infection [Unknown]
  - Somnolence [Unknown]
  - Asthenia [Unknown]
  - Constipation [Unknown]

NARRATIVE: CASE EVENT DATE: 20240101
